FAERS Safety Report 12262888 (Version 2)
Quarter: 2016Q2

REPORT INFORMATION
  Report Type: Spontaneous
  Country: GB (occurrence: GB)
  Receive Date: 20160413
  Receipt Date: 20160428
  Transmission Date: 20160815
  Serious: Yes (Disabling)
  Sender: FDA-Public Use
  Company Number: GB-PFIZER INC-2016199484

PATIENT
  Age: 47 Year
  Sex: Male
  Weight: 78 kg

DRUGS (4)
  1. MIRTAZAPINE. [Concomitant]
     Active Substance: MIRTAZAPINE
     Dosage: 30 MG, 1X/DAY
  2. FERROUS FUMARATE [Concomitant]
     Active Substance: FERROUS FUMARATE
     Dosage: 200 MG, 1X/DAY
  3. PREGABALIN. [Suspect]
     Active Substance: PREGABALIN
     Indication: ADJUSTMENT DISORDER WITH MIXED ANXIETY AND DEPRESSED MOOD
     Dosage: 150 MG, 3X/DAY
     Route: 048
     Dates: start: 20160101, end: 20160301
  4. OMEPRAZOLE. [Concomitant]
     Active Substance: OMEPRAZOLE
     Dosage: 40 MG, 1X/DAY

REACTIONS (5)
  - Condition aggravated [Recovering/Resolving]
  - Withdrawal syndrome [Unknown]
  - Anxiety [Recovering/Resolving]
  - Suicidal ideation [Unknown]
  - Palpitations [Recovering/Resolving]

NARRATIVE: CASE EVENT DATE: 20160302
